FAERS Safety Report 12499839 (Version 1)
Quarter: 2016Q2

REPORT INFORMATION
  Report Type: Spontaneous
  Country: CA (occurrence: CA)
  Receive Date: 20160627
  Receipt Date: 20160627
  Transmission Date: 20160815
  Serious: Yes (Hospitalization)
  Sender: FDA-Public Use
  Company Number: CA-ASTRAZENECA-2016SE59397

PATIENT
  Sex: Male

DRUGS (7)
  1. FORXIGA [Suspect]
     Active Substance: DAPAGLIFLOZIN
     Route: 048
  2. CIALIS [Concomitant]
     Active Substance: TADALAFIL
     Dosage: AS REQUIRED
  3. COVERSYL [Concomitant]
     Active Substance: PERINDOPRIL
  4. CRESTOR [Concomitant]
     Active Substance: ROSUVASTATIN CALCIUM
     Route: 048
  5. TECTA [Concomitant]
     Active Substance: PANTOPRAZOLE MAGNESIUM
     Route: 048
  6. FORXIGA [Suspect]
     Active Substance: DAPAGLIFLOZIN
     Dosage: RAISED TO 10 MILLIGRAMS DAILY
     Route: 048
  7. ASA [Concomitant]
     Active Substance: ASPIRIN

REACTIONS (2)
  - Diabetic ketoacidosis [Unknown]
  - Dehydration [Unknown]
